FAERS Safety Report 7095544-0 (Version None)
Quarter: 2010Q4

REPORT INFORMATION
  Report Type: 
  Country: None (occurrence: None)
  Receive Date: 20101102
  Receipt Date: 20101018
  Transmission Date: 20110411
  Serious: Yes (Other)
  Sender: FDA-Public Use
  Company Number: 011560

PATIENT
  Age: 75 Year
  Sex: Female

DRUGS (3)
  1. CILOSTAZOL [Suspect]
     Indication: PERIPHERAL ISCHAEMIA
     Dosage: ORAL
     Route: 048
  2. ASPIRIN [Concomitant]
  3. HEPARIN SODIUM [Concomitant]

REACTIONS (1)
  - ILEUS [None]
